FAERS Safety Report 16975855 (Version 1)
Quarter: 2019Q4

REPORT INFORMATION
  Report Type: Spontaneous
  Country: FR (occurrence: FR)
  Receive Date: 20191030
  Receipt Date: 20191030
  Transmission Date: 20200122
  Serious: Yes (Hospitalization, Disabling, Other)
  Sender: FDA-Public Use
  Company Number: FR-SEATTLE GENETICS-2019SGN03678

PATIENT
  Age: 23 Year
  Sex: Female
  Weight: 77 kg

DRUGS (1)
  1. ADCETRIS [Suspect]
     Active Substance: BRENTUXIMAB VEDOTIN
     Indication: HODGKIN^S DISEASE
     Dosage: UNK
     Route: 042
     Dates: start: 20180919, end: 20190719

REACTIONS (1)
  - Lewis-Sumner syndrome [Not Recovered/Not Resolved]

NARRATIVE: CASE EVENT DATE: 201906
